FAERS Safety Report 7800703-2 (Version None)
Quarter: 2011Q4

REPORT INFORMATION
  Report Type: 
  Country: None (occurrence: None)
  Receive Date: 20111006
  Receipt Date: 20110923
  Transmission Date: 20120403
  Serious: Yes (Hospitalization)
  Sender: FDA-Public Use
  Company Number: GB-ROCHE-800151

PATIENT
  Age: 46 Year
  Sex: Male
  Weight: 86.5 kg

DRUGS (1)
  1. VEMURAFENIB [Suspect]
     Indication: METASTATIC MALIGNANT MELANOMA
     Dosage: LAST DOSE PRIOR TO HOSPITALISATION: 30 AUG 2011
     Route: 048
     Dates: start: 20110711

REACTIONS (1)
  - INGUINAL HERNIA [None]
